FAERS Safety Report 17217237 (Version 1)
Quarter: 2019Q4

REPORT INFORMATION
  Report Type: Report from Study
  Country: None (occurrence: US)
  Receive Date: 20191231
  Receipt Date: 20191231
  Transmission Date: 20200122
  Serious: Yes (Hospitalization, Other)
  Sender: FDA-Public Use
  Company Number: US-ABBVIE-19K-163-2939705-00

PATIENT
  Age: 74 Year
  Sex: Male
  Weight: 113.5 kg

DRUGS (1)
  1. HUMIRA [Suspect]
     Active Substance: ADALIMUMAB
     Indication: PSORIATIC ARTHROPATHY
     Route: 058
     Dates: start: 2002, end: 20190615

REACTIONS (2)
  - Hypersensitivity vasculitis [Unknown]
  - Knee operation [Unknown]

NARRATIVE: CASE EVENT DATE: 2019
